FAERS Safety Report 9656300 (Version 1)
Quarter: 2013Q4

REPORT INFORMATION
  Report Type: Spontaneous
  Country: US (occurrence: US)
  Receive Date: 20131030
  Receipt Date: 20131030
  Transmission Date: 20140711
  Serious: No
  Sender: FDA-Public Use
  Company Number: US-PFIZER INC-2013307461

PATIENT
  Age: 60 Year
  Sex: Female

DRUGS (2)
  1. IBUPROFEN [Suspect]
     Indication: PAIN
     Dosage: 200 MG (ONE TABLET), AS NEEDED
  2. TYLENOL [Suspect]
     Indication: PAIN
     Dosage: 325 MG (ONE TABLET), AS NEEDED

REACTIONS (1)
  - Drug effect incomplete [Unknown]
